FAERS Safety Report 9747590 (Version 2)
Quarter: 2013Q4

REPORT INFORMATION
  Report Type: Spontaneous
  Country: US (occurrence: None)
  Receive Date: 20131205
  Receipt Date: 20131211
  Transmission Date: 20140711
  Serious: Yes (Hospitalization)
  Sender: FDA-Public Use
  Company Number: B0947667B

PATIENT
  Age: 6 Day
  Sex: Male
  Weight: 4.4 kg

DRUGS (3)
  1. CALCIUM CARBONATE [Suspect]
     Indication: GASTROOESOPHAGEAL REFLUX DISEASE
     Route: 064
  2. OMEPRAZOLE [Suspect]
     Indication: GASTROOESOPHAGEAL REFLUX DISEASE
     Route: 064
  3. PRENATAL VITAMINS [Suspect]
     Indication: PRODUCT USED FOR UNKNOWN INDICATION
     Route: 064

REACTIONS (14)
  - Maternal drugs affecting foetus [None]
  - Convulsion neonatal [None]
  - Caesarean section [None]
  - Hypoglycaemia neonatal [None]
  - Hyperbilirubinaemia neonatal [None]
  - ABO incompatibility [None]
  - Hypocalcaemia [None]
  - Blood magnesium decreased [None]
  - Blood phosphorus increased [None]
  - Blood parathyroid hormone decreased [None]
  - Heart rate increased [None]
  - Blood pressure decreased [None]
  - Respiratory rate increased [None]
  - Incorrect dose administered [None]
